FAERS Safety Report 9757536 (Version 1)
Quarter: 2013Q4

REPORT INFORMATION
  Report Type: Spontaneous
  Country: BR (occurrence: BR)
  Receive Date: 20131216
  Receipt Date: 20131216
  Transmission Date: 20140711
  Serious: Yes (Other)
  Sender: FDA-Public Use
  Company Number: BR-ROCHE-1318671

PATIENT
  Sex: Female

DRUGS (1)
  1. RIVOTRIL [Suspect]
     Indication: PRODUCT USED FOR UNKNOWN INDICATION
     Dosage: 2 TABLETS PER DAY
     Route: 065

REACTIONS (4)
  - Syncope [Recovered/Resolved]
  - Overdose [Unknown]
  - Malaise [Unknown]
  - Eye colour change [Not Recovered/Not Resolved]
